FAERS Safety Report 23043295 (Version 1)
Quarter: 2023Q4

REPORT INFORMATION
  Report Type: Spontaneous
  Country: GB (occurrence: GB)
  Receive Date: 20231009
  Receipt Date: 20231009
  Transmission Date: 20240110
  Serious: Yes (Life-Threatening, Hospitalization, Other)
  Sender: FDA-Public Use
  Company Number: GB-MHRA-MED-202309261317279590-CRGWN

PATIENT
  Sex: Female

DRUGS (3)
  1. BOCOUTURE [Suspect]
     Active Substance: BOTULINUM TOXIN TYPE A
     Indication: Product used for unknown indication
     Dosage: UNK
     Dates: start: 20220419
  2. SAXENDA [Suspect]
     Active Substance: LIRAGLUTIDE
     Dosage: ESCALATING DOSE
  3. SAXENDA [Suspect]
     Active Substance: LIRAGLUTIDE
     Indication: Weight control
     Dosage: UNK
     Dates: start: 202205

REACTIONS (1)
  - Methaemoglobinaemia [Recovered/Resolved]
